FAERS Safety Report 15920663 (Version 1)
Quarter: 2019Q1

REPORT INFORMATION
  Report Type: Spontaneous
  Country: US (occurrence: US)
  Receive Date: 20190205
  Receipt Date: 20190205
  Transmission Date: 20190417
  Serious: No
  Sender: FDA-Public Use
  Company Number: US-B.I. PHARMACEUTICALS,INC./RIDGEFIELD-2019-BI-004405

PATIENT
  Sex: Female

DRUGS (1)
  1. PRADAXA [Suspect]
     Active Substance: DABIGATRAN ETEXILATE MESYLATE
     Indication: PRODUCT USED FOR UNKNOWN INDICATION
     Dosage: STRENGTH: 110 MG; FORMULATION: CAPSULE? ADMINISTRATION CORRECT? NR ACTION(S) TAKEN WITH PRODUCT: NR
     Route: 048
     Dates: start: 2016

REACTIONS (1)
  - Laryngitis [Not Recovered/Not Resolved]
